FAERS Safety Report 17571128 (Version 1)
Quarter: 2020Q1

REPORT INFORMATION
  Report Type: Spontaneous
  Country: HR (occurrence: HR)
  Receive Date: 20200323
  Receipt Date: 20200323
  Transmission Date: 20200409
  Serious: Yes (Other)
  Sender: FDA-Public Use
  Company Number: HR-TEVA-2020-HR-1206214

PATIENT
  Age: 24 Year
  Sex: Male

DRUGS (3)
  1. DEPAKINE CHRONO [Suspect]
     Active Substance: VALPROATE SODIUM
     Dosage: ADDITIONAL INFO: ADR IS ADEQUATELY LABELLED: DARK COLOUR VOMITING, VOMITING BLOODXADR IS NOT ADEQUAT
     Route: 048
     Dates: start: 20191118, end: 20191118
  2. RINOLAN [Suspect]
     Active Substance: LORATADINE
     Route: 048
     Dates: start: 20191118, end: 20191118
  3. DALNEVA [Suspect]
     Active Substance: AMLODIPINE BESYLATE\PERINDOPRIL ERBUMINE
     Dosage: ADDITIONAL INFO: 1 DF = 1 TABLETAXXADR IS ADEQUATELY LABELLED: DARK COLOUR VOMITING, CREATININE INCR
     Route: 048
     Dates: start: 20191118, end: 20191118

REACTIONS (5)
  - Intentional overdose [Unknown]
  - Haematemesis [Unknown]
  - Discoloured vomit [Unknown]
  - Blood creatinine increased [Unknown]
  - Suicide attempt [Unknown]

NARRATIVE: CASE EVENT DATE: 20191118
